FAERS Safety Report 9565656 (Version 1)
Quarter: 2013Q3

REPORT INFORMATION
  Report Type: Spontaneous
  Country: US (occurrence: US)
  Receive Date: 20130930
  Receipt Date: 20130930
  Transmission Date: 20140515
  Serious: No
  Sender: FDA-Public Use
  Company Number: US-PFIZER INC-2013278534

PATIENT
  Age: 86 Year
  Sex: Female
  Weight: 46.71 kg

DRUGS (1)
  1. NEURONTIN [Suspect]
     Dosage: 300 MG, DAILY
     Route: 048
     Dates: start: 201308

REACTIONS (6)
  - Irritability [Recovering/Resolving]
  - Anxiety [Not Recovered/Not Resolved]
  - Insomnia [Recovering/Resolving]
  - Mania [Recovering/Resolving]
  - Weight increased [Unknown]
  - Pain [Recovering/Resolving]
